FAERS Safety Report 4395689-X (Version None)
Quarter: 2004Q3

REPORT INFORMATION
  Report Type: 
  Country: None (occurrence: None)
  Receive Date: 20040708
  Receipt Date: 20040625
  Transmission Date: 20050211
  Serious: Yes (Hospitalization, Other)
  Sender: FDA-Public Use
  Company Number: US-JNJFOC-20040607911

PATIENT
  Age: 53 Year
  Sex: Female

DRUGS (9)
  1. INFLIXIMAB(INFLIXIMAB, RECOMBINANT) LYOPHILIZED POWDER [Suspect]
     Indication: RHEUMATOID ARTHRITIS
     Dosage: INTRAVENOUS
     Route: 042
     Dates: start: 20010521
  2. INFLIXIMAB(INFLIXIMAB, RECOMBINANT) LYOPHILIZED POWDER [Suspect]
     Indication: RHEUMATOID ARTHRITIS
     Dosage: INTRAVENOUS
     Route: 042
     Dates: start: 20020501
  3. SYNTHROID [Concomitant]
  4. ENBREL [Concomitant]
  5. PREDNISONE TAB [Concomitant]
  6. VIOXX [Concomitant]
  7. CALCIUM (CALCIUM) [Concomitant]
  8. ALEVE [Concomitant]
  9. MULTIVITAMIN (MULTIVITAMINS) [Concomitant]

REACTIONS (1)
  - ENDOMETRIAL SARCOMA [None]
